FAERS Safety Report 22530914 (Version 1)
Quarter: 2023Q2

REPORT INFORMATION
  Report Type: Report from Study
  Country: BR (occurrence: BR)
  Receive Date: 20230607
  Receipt Date: 20230607
  Transmission Date: 20230722
  Serious: Yes (Hospitalization, Other)
  Sender: FDA-Public Use
  Company Number: BR-ABBVIE-5188183

PATIENT
  Age: 51 Year
  Sex: Female
  Weight: 84 kg

DRUGS (8)
  1. RINVOQ [Suspect]
     Active Substance: UPADACITINIB
     Indication: Rheumatoid arthritis
     Route: 048
  2. RINVOQ [Suspect]
     Active Substance: UPADACITINIB
     Indication: Rheumatoid arthritis
     Dosage: 15 MILLIGRAM
     Route: 048
     Dates: start: 20210717
  3. VITAMIN D [Concomitant]
     Active Substance: VITAMIN D NOS
     Indication: Vitamin D deficiency
     Route: 065
  4. VITAMIN C [Concomitant]
     Active Substance: ASCORBIC ACID
     Indication: Prophylaxis
     Route: 048
     Dates: start: 2021
  5. PURAN [Concomitant]
     Active Substance: LEVOTHYROXINE SODIUM
     Indication: Thyroid disorder
     Dosage: 75 MILLIGRAM
     Route: 065
  6. FOLIC ACID [Concomitant]
     Active Substance: FOLIC ACID
     Indication: Rheumatoid arthritis
     Dosage: FRIDAY TO WEDNESDAY
     Route: 048
     Dates: start: 2021
  7. METHOTREXATE [Concomitant]
     Active Substance: METHOTREXATE
     Indication: Rheumatoid arthritis
     Dosage: EVERY THURSDAY
     Route: 048
  8. METHOTREXATE [Concomitant]
     Active Substance: METHOTREXATE
     Indication: Rheumatoid arthritis
     Route: 048
     Dates: start: 2021

REACTIONS (16)
  - Pancreatolithiasis [Recovered/Resolved]
  - Hypertension [Not Recovered/Not Resolved]
  - Gait disturbance [Not Recovered/Not Resolved]
  - COVID-19 [Recovered/Resolved]
  - Joint swelling [Not Recovered/Not Resolved]
  - Arthritis [Unknown]
  - Pancreatitis [Recovered/Resolved]
  - Fatigue [Recovered/Resolved]
  - Mobility decreased [Unknown]
  - Joint swelling [Recovered/Resolved]
  - Pain [Not Recovered/Not Resolved]
  - Cholecystectomy [Unknown]
  - Drug ineffective [Unknown]
  - Incision site pain [Not Recovered/Not Resolved]
  - Ageusia [Recovered/Resolved]
  - Anosmia [Recovered/Resolved]

NARRATIVE: CASE EVENT DATE: 20210701
